FAERS Safety Report 10772439 (Version 1)
Quarter: 2015Q1

REPORT INFORMATION
  Report Type: Report from Study
  Country: CA (occurrence: CA)
  Receive Date: 20150207
  Receipt Date: 20150207
  Transmission Date: 20150721
  Serious: Yes (Death, Hospitalization)
  Sender: FDA-Public Use
  Company Number: CA-JNJFOC-20150201577

PATIENT
  Age: 49 Year
  Sex: Male

DRUGS (3)
  1. ACETAMINOPHEN. [Suspect]
     Active Substance: ACETAMINOPHEN
     Route: 048
  2. ACETAMINOPHEN. [Suspect]
     Active Substance: ACETAMINOPHEN
     Indication: PRODUCT USED FOR UNKNOWN INDICATION
     Dosage: 10-15 TABLETS
     Route: 048
     Dates: start: 19961023, end: 19961024
  3. ALCOHOL. [Suspect]
     Active Substance: ALCOHOL
     Indication: PRODUCT USED FOR UNKNOWN INDICATION
     Route: 048

REACTIONS (15)
  - Hepatic encephalopathy [Fatal]
  - Hepatic failure [Fatal]
  - Coma [Fatal]
  - Acute kidney injury [Fatal]
  - Hip fracture [Fatal]
  - Overdose [Fatal]
  - Fall [Fatal]
  - Disseminated intravascular coagulation [Fatal]
  - Upper gastrointestinal haemorrhage [Fatal]
  - Drug-induced liver injury [Fatal]
  - Thrombocytopenia [Fatal]
  - Lactic acidosis [Fatal]
  - Ileus paralytic [Fatal]
  - Pneumonia aspiration [Fatal]
  - Septic shock [Fatal]
